FAERS Safety Report 9498624 (Version 1)
Quarter: 2013Q3

REPORT INFORMATION
  Report Type: Spontaneous
  Country: None (occurrence: None)
  Receive Date: 20130830
  Receipt Date: 20130830
  Transmission Date: 20140515
  Serious: Yes (Death, Life-Threatening, Hospitalization, Other)
  Sender: FDA-Public Use
  Company Number: CO-OR-UK-2013-024

PATIENT
  Age: 70 Year
  Sex: Female

DRUGS (3)
  1. PREDNISOLONE [Suspect]
     Indication: DRUG REACTION WITH EOSINOPHILIA AND SYSTEMIC SYMPTOMS
  2. INSULIN [Concomitant]
  3. AZATHIPRINE [Concomitant]

REACTIONS (6)
  - Cardiac arrest [None]
  - Left ventricular hypertrophy [None]
  - Eosinophilic myocarditis [None]
  - Diabetes mellitus [None]
  - Hepatitis acute [None]
  - Shock [None]
